FAERS Safety Report 5647353-4 (Version None)
Quarter: 2008Q1

REPORT INFORMATION
  Report Type: 
  Country: None (occurrence: None)
  Receive Date: 20080303
  Receipt Date: 20080225
  Transmission Date: 20080703
  Serious: Yes (Hospitalization)
  Sender: FDA-Public Use
  Company Number: JP-ASTRAZENECA-2008AP01314

PATIENT
  Age: 62 Year
  Sex: Female

DRUGS (7)
  1. TENORMIN [Suspect]
     Indication: ESSENTIAL HYPERTENSION
     Route: 048
     Dates: start: 20070301, end: 20071108
  2. AMLODIN [Suspect]
     Route: 048
     Dates: end: 20060913
  3. AMLODIN [Suspect]
     Route: 048
     Dates: start: 20060929, end: 20071108
  4. OLMESARTAN MEDOXOMIL [Suspect]
     Indication: ESSENTIAL HYPERTENSION
     Route: 048
     Dates: start: 20060914, end: 20071108
  5. OLMESARTAN MEDOXOMIL [Suspect]
     Route: 065
     Dates: start: 20080114
  6. MUCOSTA [Concomitant]
     Route: 048
     Dates: start: 20070831, end: 20071108
  7. DEPAS [Concomitant]
     Route: 048
     Dates: start: 20070326, end: 20071108

REACTIONS (2)
  - DIZZINESS [None]
  - FEMUR FRACTURE [None]
